FAERS Safety Report 7328789-2 (Version None)
Quarter: 2011Q1

REPORT INFORMATION
  Report Type: 
  Country: None (occurrence: None)
  Receive Date: 20110303
  Receipt Date: 20110224
  Transmission Date: 20110831
  Serious: Yes (Other)
  Sender: FDA-Public Use
  Company Number: DE-ROCHE-759141

PATIENT
  Sex: Male
  Weight: 110 kg

DRUGS (2)
  1. IBUPROFEN [Concomitant]
     Indication: PAIN
     Route: 048
     Dates: start: 20110131, end: 20110203
  2. TAMIFLU [Suspect]
     Indication: INFLUENZA
     Route: 048
     Dates: start: 20110131, end: 20110204

REACTIONS (1)
  - HERPES ZOSTER INFECTION NEUROLOGICAL [None]
